FAERS Safety Report 5162984-6 (Version None)
Quarter: 2006Q4

REPORT INFORMATION
  Report Type: 
  Country: None (occurrence: None)
  Receive Date: 20061201
  Receipt Date: 20061120
  Transmission Date: 20070319
  Serious: Yes (Disabling)
  Sender: FDA-Public Use
  Company Number: GB-ELI_LILLY_AND_COMPANY-GB200611003812

PATIENT
  Age: 44 Year
  Sex: Female

DRUGS (3)
  1. YENTREVE [Suspect]
     Indication: URINARY INCONTINENCE
     Dosage: 40 MG, 2/D
     Route: 048
     Dates: start: 20060501, end: 20060601
  2. YENTREVE [Suspect]
     Dosage: 20 MG, 2/D
     Dates: start: 20060601, end: 20061001
  3. ANTIHISTAMINES [Concomitant]
     Dosage: UNK, UNKNOWN
     Route: 048

REACTIONS (3)
  - DEPRESSED MOOD [None]
  - PANIC ATTACK [None]
  - SOCIAL AVOIDANT BEHAVIOUR [None]
